FAERS Safety Report 7757010-6 (Version None)
Quarter: 2011Q3

REPORT INFORMATION
  Report Type: 
  Country: None (occurrence: None)
  Receive Date: 20110916
  Receipt Date: 20110916
  Transmission Date: 20111222
  Serious: Yes (Death)
  Sender: FDA-Public Use
  Company Number: None

PATIENT
  Sex: Female
  Weight: 83.6 kg

DRUGS (1)
  1. PRADAXA [Suspect]
     Indication: ATRIAL FIBRILLATION
     Dosage: 150 MG
     Route: 048

REACTIONS (9)
  - HAEMOGLOBIN DECREASED [None]
  - LETHARGY [None]
  - RENAL FAILURE ACUTE [None]
  - HAEMOPTYSIS [None]
  - INTERNATIONAL NORMALISED RATIO INCREASED [None]
  - SUBARACHNOID HAEMORRHAGE [None]
  - ENCEPHALOPATHY [None]
  - GAIT DISTURBANCE [None]
  - MELAENA [None]
